FAERS Safety Report 22234961 (Version 2)
Quarter: 2023Q4

REPORT INFORMATION
  Report Type: Spontaneous
  Country: CH (occurrence: CH)
  Receive Date: 20230420
  Receipt Date: 20231109
  Transmission Date: 20240109
  Serious: Yes (Hospitalization, Other)
  Sender: FDA-Public Use
  Company Number: None

PATIENT
  Age: 75 Year
  Weight: 98 kg

DRUGS (19)
  1. CLINDAMYCIN [Suspect]
     Active Substance: CLINDAMYCIN
     Dosage: 1350 UG, DAILY
     Route: 048
     Dates: start: 20230318, end: 20230327
  2. CEFEPIME [Suspect]
     Active Substance: CEFEPIME HYDROCHLORIDE
     Dosage: 2 G, DAILY
     Dates: start: 20230317, end: 20230318
  3. DOXYCYCLINE HYCLATE [Suspect]
     Active Substance: DOXYCYCLINE HYCLATE
     Dosage: 100 MG, 2X/DAY
     Route: 048
     Dates: start: 20230309, end: 20230317
  4. PIPERACILLIN SODIUM\TAZOBACTAM SODIUM [Suspect]
     Active Substance: PIPERACILLIN SODIUM\TAZOBACTAM SODIUM
     Dosage: 4.5 G, 3X/DAY
     Route: 041
     Dates: start: 20230318, end: 20230323
  5. HYDROMORPHONE [Suspect]
     Active Substance: HYDROMORPHONE
     Dosage: 0.4 MG, 1X/DAY
     Dates: start: 20230317, end: 20230317
  6. FENTANYL [Suspect]
     Active Substance: FENTANYL\FENTANYL CITRATE
     Dosage: 350 UG, 1X/DAY
     Dates: start: 20230317, end: 20230317
  7. ACTONEL [Concomitant]
     Active Substance: RISEDRONATE SODIUM
     Dosage: 1 DF, WEEKLY
     Route: 048
  8. CALCIUM CARBONATE\CHOLECALCIFEROL [Concomitant]
     Active Substance: CALCIUM CARBONATE\CHOLECALCIFEROL
     Dosage: 1 DF, CYCLIC (EVEY 6 WEEK)
     Route: 048
  9. OXYCODONE HYDROCHLORIDE [Concomitant]
     Active Substance: OXYCODONE HYDROCHLORIDE
     Dosage: UNK
  10. CANDESARTAN [Concomitant]
     Active Substance: CANDESARTAN
     Dosage: 1 DF, DAILY
  11. CITALOPRAM HYDROBROMIDE [Concomitant]
     Active Substance: CITALOPRAM HYDROBROMIDE
     Dosage: 1 DF, DAILY
  12. DAFALGAN [Concomitant]
     Active Substance: ACETAMINOPHEN
     Dosage: 1 DF, 3X/DAY
  13. IRON POLYMALTOSE [Concomitant]
     Active Substance: IRON POLYMALTOSE
     Dosage: 1 DF, 3X/DAY
  14. PANTOPRAZOLE SODIUM [Concomitant]
     Active Substance: PANTOPRAZOLE SODIUM
     Dosage: 1 DF, 3X/DAY
  15. METOCLOPRAMIDE HYDROCHLORIDE [Concomitant]
     Active Substance: METOCLOPRAMIDE HYDROCHLORIDE
     Dosage: 1 DF, 3X/DAY
  16. PREDNISONE [Concomitant]
     Active Substance: PREDNISONE
     Dosage: 0.5 DF, DAILY
  17. PREGABALIN [Concomitant]
     Active Substance: PREGABALIN
     Dosage: 1 DF, 1X/DAY
  18. TORSEMIDE [Concomitant]
     Active Substance: TORSEMIDE
     Dosage: 1 DF, 1X/DAY
  19. XARELTO [Concomitant]
     Active Substance: RIVAROXABAN
     Dosage: 1 DF, 1X/DAY

REACTIONS (4)
  - Encephalopathy [Recovering/Resolving]
  - Drug-induced liver injury [Recovering/Resolving]
  - Oesophagitis ulcerative [Recovering/Resolving]
  - Off label use [Recovering/Resolving]

NARRATIVE: CASE EVENT DATE: 20230318
